FAERS Safety Report 13401000 (Version 1)
Quarter: 2017Q2

REPORT INFORMATION
  Report Type: Spontaneous
  Country: RU (occurrence: RU)
  Receive Date: 20170404
  Receipt Date: 20170404
  Transmission Date: 20170830
  Serious: Yes (Other)
  Sender: FDA-Public Use
  Company Number: RU-ASTRAZENECA-2017SE33270

PATIENT
  Age: 70 Year
  Sex: Female
  Weight: 76 kg

DRUGS (2)
  1. EXFORGE [Concomitant]
     Active Substance: AMLODIPINE BESYLATE\VALSARTAN
  2. CRESTOR [Suspect]
     Active Substance: ROSUVASTATIN CALCIUM
     Indication: BLOOD CHOLESTEROL INCREASED
     Route: 048
     Dates: start: 2010

REACTIONS (3)
  - Intervertebral disc protrusion [Unknown]
  - Goitre [Unknown]
  - Osteoarthritis [Unknown]
